FAERS Safety Report 17673964 (Version 3)
Quarter: 2020Q2

REPORT INFORMATION
  Report Type: Spontaneous
  Country: US (occurrence: US)
  Receive Date: 20200415
  Receipt Date: 20200611
  Transmission Date: 20200714
  Serious: No
  Sender: FDA-Public Use
  Company Number: US-ASTRAZENECA-2020SE50022

PATIENT
  Sex: Female
  Weight: 70.3 kg

DRUGS (8)
  1. SYMBICORT [Suspect]
     Active Substance: BUDESONIDE\FORMOTEROL FUMARATE DIHYDRATE
     Indication: COUGH
     Dosage: 160-4.5 MCG 2 PUFFS TWO TIMES A DAY
     Route: 055
     Dates: start: 2020, end: 2020
  2. SYMBICORT [Suspect]
     Active Substance: BUDESONIDE\FORMOTEROL FUMARATE DIHYDRATE
     Indication: WHEEZING
     Dosage: 160-4.5 MCG 2 PUFFS TWO TIMES A DAY
     Route: 055
     Dates: start: 2020, end: 2020
  3. SYMBICORT [Suspect]
     Active Substance: BUDESONIDE\FORMOTEROL FUMARATE DIHYDRATE
     Indication: DYSPNOEA
     Dosage: 160-4.5 MCG 2 PUFFS TWO TIMES A DAY
     Route: 055
     Dates: start: 2020, end: 2020
  4. SYMBICORT [Suspect]
     Active Substance: BUDESONIDE\FORMOTEROL FUMARATE DIHYDRATE
     Indication: DYSPNOEA
     Dosage: 160-4.5 MCG 1 PUFFS TWO TIMES A DAY
     Route: 055
     Dates: start: 2020
  5. SYMBICORT [Suspect]
     Active Substance: BUDESONIDE\FORMOTEROL FUMARATE DIHYDRATE
     Indication: COUGH
     Dosage: 160-4.5 MCG 1 PUFFS TWO TIMES A DAY
     Route: 055
     Dates: start: 2020
  6. SYMBICORT [Suspect]
     Active Substance: BUDESONIDE\FORMOTEROL FUMARATE DIHYDRATE
     Indication: WHEEZING
     Dosage: 160-4.5 MCG 2 PUFFS TWO TIMES A DAY
     Route: 055
     Dates: start: 2020, end: 2020
  7. SYMBICORT [Suspect]
     Active Substance: BUDESONIDE\FORMOTEROL FUMARATE DIHYDRATE
     Indication: WHEEZING
     Dosage: 160-4.5 MCG 1 PUFFS TWO TIMES A DAY
     Route: 055
     Dates: start: 2020
  8. SYMBICORT [Suspect]
     Active Substance: BUDESONIDE\FORMOTEROL FUMARATE DIHYDRATE
     Indication: WHEEZING
     Dosage: 160-4.5 MCG 1 PUFFS TWO TIMES A DAY
     Route: 055
     Dates: start: 2020

REACTIONS (6)
  - Intentional product misuse [Not Recovered/Not Resolved]
  - Insomnia [Unknown]
  - Cough [Not Recovered/Not Resolved]
  - Device issue [Unknown]
  - Wheezing [Unknown]
  - Wrong technique in device usage process [Unknown]
